FAERS Safety Report 11544685 (Version 3)
Quarter: 2016Q1

REPORT INFORMATION
  Report Type: Spontaneous
  Country: US (occurrence: US)
  Receive Date: 20150924
  Receipt Date: 20160107
  Transmission Date: 20160525
  Serious: Yes (Other)
  Sender: FDA-Public Use
  Company Number: US-BAYER-2015-423597

PATIENT
  Age: 42 Year
  Sex: Female
  Weight: 47.62 kg

DRUGS (2)
  1. MIRENA [Suspect]
     Active Substance: LEVONORGESTREL
     Indication: MENORRHAGIA
     Dosage: 20 MCG/24HR, CONT
     Route: 015
     Dates: start: 20150417, end: 201508
  2. MIRENA [Suspect]
     Active Substance: LEVONORGESTREL
     Indication: MENORRHAGIA
     Dosage: 20 MCG/24HR, CONT
     Route: 015
     Dates: start: 20130606, end: 20150417

REACTIONS (12)
  - Device dislocation [None]
  - Female orgasmic disorder [Not Recovered/Not Resolved]
  - Medical device pain [Recovered/Resolved]
  - Depressed mood [None]
  - Injury [None]
  - Pelvic pain [None]
  - Physical disability [None]
  - Genital haemorrhage [None]
  - Drug ineffective [None]
  - Patient-device incompatibility [None]
  - Inflammation [None]
  - Emotional disorder [None]

NARRATIVE: CASE EVENT DATE: 20150416
